FAERS Safety Report 6405292-5 (Version None)
Quarter: 2009Q4

REPORT INFORMATION
  Report Type: 
  Country: None (occurrence: None)
  Receive Date: 20091016
  Receipt Date: 20091016
  Transmission Date: 20100525
  Serious: Yes (Life-Threatening, Hospitalization)
  Sender: FDA-Public Use
  Company Number: None

PATIENT
  Sex: Female
  Weight: 52.6173 kg

DRUGS (1)
  1. VIMPAT [Suspect]
     Indication: PARTIAL SEIZURES
     Dosage: 50 MG BID PO
     Route: 048
     Dates: start: 20090830, end: 20090909

REACTIONS (8)
  - CONFUSIONAL STATE [None]
  - DIZZINESS [None]
  - DRUG INTOLERANCE [None]
  - INCORRECT DOSE ADMINISTERED [None]
  - LETHARGY [None]
  - NAUSEA [None]
  - SUICIDAL IDEATION [None]
  - WRONG TECHNIQUE IN DRUG USAGE PROCESS [None]
